FAERS Safety Report 9543029 (Version 1)
Quarter: 2013Q3

REPORT INFORMATION
  Report Type: Spontaneous
  Country: PL (occurrence: PL)
  Receive Date: 20130923
  Receipt Date: 20130923
  Transmission Date: 20140515
  Serious: Yes (Death, Other)
  Sender: FDA-Public Use
  Company Number: PHHY2013PL104799

PATIENT
  Age: 3 Year
  Sex: Male

DRUGS (7)
  1. SUXAMETHONIUM CHLORIDE [Suspect]
     Indication: GENERAL ANAESTHESIA
     Dosage: 1 MG/KG
  2. SEVOFLURANE [Suspect]
     Indication: GENERAL ANAESTHESIA
  3. MIDAZOLAM [Concomitant]
     Indication: GENERAL ANAESTHESIA
  4. OXYGEN [Concomitant]
  5. NITROUS OXIDE [Concomitant]
  6. KETOPROFEN [Concomitant]
     Indication: ANALGESIC THERAPY
  7. GLUCOSE [Concomitant]
     Route: 042

REACTIONS (8)
  - Hyperthermia malignant [Fatal]
  - Muscle rigidity [Fatal]
  - Oxygen saturation decreased [Fatal]
  - Arrhythmia [Fatal]
  - Shock [Fatal]
  - Cardiac arrest [Fatal]
  - Posture abnormal [Unknown]
  - Heart rate decreased [Unknown]
